FAERS Safety Report 17883265 (Version 1)
Quarter: 2020Q2

REPORT INFORMATION
  Report Type: Spontaneous
  Country: TR (occurrence: TR)
  Receive Date: 20200611
  Receipt Date: 20200611
  Transmission Date: 20200714
  Serious: Yes (Other)
  Sender: FDA-Public Use
  Company Number: TR-009507513-2006TUR002446

PATIENT
  Weight: 44 kg

DRUGS (1)
  1. TEMOZOLOMIDE. [Suspect]
     Active Substance: TEMOZOLOMIDE
     Indication: METASTASES TO LIVER
     Dosage: UNK

REACTIONS (2)
  - Hepatic cancer metastatic [Not Recovered/Not Resolved]
  - Product use in unapproved indication [Unknown]
